FAERS Safety Report 16359786 (Version 1)
Quarter: 2019Q2

REPORT INFORMATION
  Report Type: Spontaneous
  Country: CN (occurrence: CN)
  Receive Date: 20190528
  Receipt Date: 20190528
  Transmission Date: 20190711
  Serious: Yes (Other)
  Sender: FDA-Public Use
  Company Number: CN-ROCHE-2317310

PATIENT
  Age: 67 Year
  Sex: Male

DRUGS (15)
  1. DURVALUMAB. [Concomitant]
     Active Substance: DURVALUMAB
     Indication: SIGNET-RING CELL CARCINOMA
  2. DURVALUMAB. [Concomitant]
     Active Substance: DURVALUMAB
     Indication: METASTASES TO LYMPH NODES
  3. DURVALUMAB. [Concomitant]
     Active Substance: DURVALUMAB
     Indication: ADENOCARCINOMA GASTRIC
     Route: 065
     Dates: start: 20170413
  4. XELODA [Suspect]
     Active Substance: CAPECITABINE
     Indication: ADENOCARCINOMA GASTRIC
     Route: 048
  5. XELODA [Suspect]
     Active Substance: CAPECITABINE
     Indication: SIGNET-RING CELL CARCINOMA
  6. IRINOTECAN [Concomitant]
     Active Substance: IRINOTECAN
     Indication: ADENOCARCINOMA GASTRIC
  7. IRINOTECAN [Concomitant]
     Active Substance: IRINOTECAN
     Indication: SIGNET-RING CELL CARCINOMA
  8. NIMOTUZUMAB [Concomitant]
     Active Substance: NIMOTUZUMAB
     Indication: ADENOCARCINOMA GASTRIC
  9. PACLITAXEL. [Concomitant]
     Active Substance: PACLITAXEL
     Indication: SIGNET-RING CELL CARCINOMA
  10. IRINOTECAN [Concomitant]
     Active Substance: IRINOTECAN
     Indication: METASTASES TO LYMPH NODES
  11. NIMOTUZUMAB [Concomitant]
     Active Substance: NIMOTUZUMAB
     Indication: METASTASES TO LYMPH NODES
  12. XELODA [Suspect]
     Active Substance: CAPECITABINE
     Indication: METASTASES TO LYMPH NODES
  13. PACLITAXEL. [Concomitant]
     Active Substance: PACLITAXEL
     Indication: ADENOCARCINOMA GASTRIC
  14. PACLITAXEL. [Concomitant]
     Active Substance: PACLITAXEL
     Indication: METASTASES TO LYMPH NODES
  15. NIMOTUZUMAB [Concomitant]
     Active Substance: NIMOTUZUMAB
     Indication: SIGNET-RING CELL CARCINOMA

REACTIONS (8)
  - Polymyositis [Unknown]
  - Ventricular arrhythmia [Unknown]
  - Asthenia [Unknown]
  - Eyelid ptosis [Unknown]
  - Atrioventricular block complete [Unknown]
  - Cardiac failure [Unknown]
  - Bundle branch block right [Unknown]
  - Myocarditis [Unknown]

NARRATIVE: CASE EVENT DATE: 2017
